FAERS Safety Report 8284314-3 (Version None)
Quarter: 2012Q2

REPORT INFORMATION
  Report Type: 
  Country: None (occurrence: None)
  Receive Date: 20120413
  Receipt Date: 20110511
  Transmission Date: 20120825
  Serious: No
  Sender: FDA-Public Use
  Company Number: US-ASTRAZENECA-2011SE29039

PATIENT
  Sex: Female

DRUGS (2)
  1. NEXIUM [Suspect]
     Route: 048
  2. OTC MEDICATIONS [Concomitant]

REACTIONS (2)
  - ASTHMA [None]
  - GASTROOESOPHAGEAL REFLUX DISEASE [None]
